FAERS Safety Report 16094839 (Version 1)
Quarter: 2019Q1

REPORT INFORMATION
  Report Type: Report from Study
  Country: PL (occurrence: PL)
  Receive Date: 20190320
  Receipt Date: 20190320
  Transmission Date: 20190418
  Serious: Yes (Other)
  Sender: FDA-Public Use
  Company Number: PL-CHIESI USA, INC.-PL-2019CHI000106

PATIENT

DRUGS (3)
  1. KETAMINE [Concomitant]
     Active Substance: KETAMINE
     Indication: PREMEDICATION
     Dosage: 1 MG/KG, QD
     Dates: start: 20190307, end: 20190307
  2. CAFFEINE CITRATE. [Concomitant]
     Active Substance: CAFFEINE CITRATE
     Indication: PRODUCT USED FOR UNKNOWN INDICATION
     Dosage: 20 MG/KG, QD
     Dates: start: 20190307
  3. CUROSURF [Suspect]
     Active Substance: PORACTANT ALFA
     Indication: NEONATAL RESPIRATORY DISTRESS SYNDROME
     Dosage: 4.5 ML, UNK
     Route: 039
     Dates: start: 20190307, end: 20190307

REACTIONS (1)
  - Neonatal hypoxia [Unknown]

NARRATIVE: CASE EVENT DATE: 20190307
